FAERS Safety Report 25738660 (Version 2)
Quarter: 2025Q4

REPORT INFORMATION
  Report Type: Spontaneous
  Country: US (occurrence: US)
  Receive Date: 20250829
  Receipt Date: 20251127
  Transmission Date: 20260118
  Serious: Yes (Other)
  Sender: BRISTOL-MYERS SQUIBB COMPANY
  Company Number: US-BRISTOL-MYERS SQUIBB COMPANY-2025-117254

PATIENT
  Age: 7 Decade

DRUGS (3)
  1. NIVOLUMAB [Suspect]
     Active Substance: NIVOLUMAB
     Indication: Metastatic malignant melanoma
     Dosage: 4 CYCLES, 3 MONTHS
  2. NIVOLUMAB [Suspect]
     Active Substance: NIVOLUMAB
     Dosage: 12 MONTHS
  3. IPILIMUMAB [Suspect]
     Active Substance: IPILIMUMAB
     Indication: Metastatic malignant melanoma
     Dosage: 4 CYCLES, 3 MONTHS

REACTIONS (2)
  - Immune-mediated hypophysitis [Unknown]
  - Type 1 diabetes mellitus [Not Recovered/Not Resolved]
